FAERS Safety Report 8068656-2 (Version None)
Quarter: 2012Q1

REPORT INFORMATION
  Report Type: 
  Country: None (occurrence: None)
  Receive Date: 20120124
  Receipt Date: 20111115
  Transmission Date: 20120608
  Serious: No
  Sender: FDA-Public Use
  Company Number: US-AMGEN-USASP2011047240

PATIENT
  Age: 84 Year
  Sex: Female
  Weight: 59.41 kg

DRUGS (7)
  1. TEMAZEPAM [Concomitant]
  2. LISINOPRIL [Concomitant]
  3. CALCIUM WITH VITAMIN D             /00944201/ [Concomitant]
     Dosage: 600 MG, QD
  4. LISINOPRIL [Concomitant]
  5. TEMAZEPAM [Concomitant]
  6. PROLIA [Suspect]
     Indication: OSTEOPOROSIS
     Dosage: 60 MG, Q6MO
     Dates: start: 20110801
  7. LEVOTHYROXINE SODIUM [Concomitant]

REACTIONS (5)
  - PARAESTHESIA [None]
  - BLOOD CALCIUM ABNORMAL [None]
  - MUSCLE TWITCHING [None]
  - VITAMIN D ABNORMAL [None]
  - MUSCLE SPASMS [None]
